FAERS Safety Report 11138517 (Version 2)
Quarter: 2015Q3

REPORT INFORMATION
  Report Type: Spontaneous
  Country: US (occurrence: US)
  Receive Date: 20150527
  Receipt Date: 20150714
  Transmission Date: 20151125
  Serious: No
  Sender: FDA-Public Use
  Company Number: US-LEO PHARMA-234491

PATIENT
  Age: 60 Year
  Sex: Female

DRUGS (2)
  1. PICATO [Suspect]
     Active Substance: INGENOL MEBUTATE
     Indication: PRECANCEROUS SKIN LESION
     Route: 061
     Dates: start: 20150512
  2. PICATO [Suspect]
     Active Substance: INGENOL MEBUTATE
     Dates: start: 2014, end: 2014

REACTIONS (9)
  - Application site erythema [Recovered/Resolved]
  - Application site irritation [Recovered/Resolved]
  - Oral discomfort [Recovered/Resolved]
  - Application site pruritus [Recovered/Resolved]
  - Lip dry [Recovered/Resolved]
  - Inappropriate schedule of drug administration [Unknown]
  - Application site exfoliation [Recovered/Resolved]
  - Application site pain [Recovered/Resolved]
  - Application site discolouration [Recovered/Resolved]

NARRATIVE: CASE EVENT DATE: 20150512
